FAERS Safety Report 5295304-7 (Version None)
Quarter: 2007Q2

REPORT INFORMATION
  Report Type: 
  Country: None (occurrence: None)
  Receive Date: 20070412
  Receipt Date: 20070405
  Transmission Date: 20071010
  Serious: Yes (Other)
  Sender: FDA-Public Use
  Company Number: US-PFIZER INC-2007027783

PATIENT

DRUGS (2)
  1. CELEBREX [Suspect]
     Dosage: TEXT:UNKNOWN
     Dates: start: 20021122, end: 20030306
  2. BEXTRA [Suspect]
     Dosage: TEXT:UNKNOWN
     Dates: start: 20020731, end: 20040607

REACTIONS (9)
  - ANGIOPATHY [None]
  - ARRHYTHMIA [None]
  - CARDIOVASCULAR DISORDER [None]
  - CEREBROVASCULAR ACCIDENT [None]
  - MYOCARDIAL INFARCTION [None]
  - ORGAN FAILURE [None]
  - PULMONARY EMBOLISM [None]
  - STEVENS-JOHNSON SYNDROME [None]
  - THROMBOSIS [None]
